FAERS Safety Report 6988951-5 (Version None)
Quarter: 2010Q3

REPORT INFORMATION
  Report Type: 
  Country: None (occurrence: None)
  Receive Date: 20100916
  Receipt Date: 20090828
  Transmission Date: 20110219
  Serious: Yes (Other)
  Sender: FDA-Public Use
  Company Number: US-PFIZER INC-2009216625

PATIENT

DRUGS (1)
  1. LYRICA [Suspect]

REACTIONS (2)
  - DISORIENTATION [None]
  - LOSS OF CONSCIOUSNESS [None]
